FAERS Safety Report 6067791-8 (Version None)
Quarter: 2009Q1

REPORT INFORMATION
  Report Type: 
  Country: None (occurrence: None)
  Receive Date: 20090203
  Receipt Date: 20090123
  Transmission Date: 20090719
  Serious: Yes (Hospitalization)
  Sender: FDA-Public Use
  Company Number: 231775K08USA

PATIENT
  Age: 47 Year
  Sex: Female

DRUGS (14)
  1. REBIF [Suspect]
     Indication: MULTIPLE SCLEROSIS
     Dosage: 8.8 MCG, 3 IN 1 WEEKS, SUBCUTANEOUS; 44 MCG, 3 IN 1 WEEKS, SUBCUTANEOUS
     Route: 058
     Dates: start: 20081102, end: 20080101
  2. REBIF [Suspect]
     Indication: MULTIPLE SCLEROSIS
     Dosage: 8.8 MCG, 3 IN 1 WEEKS, SUBCUTANEOUS; 44 MCG, 3 IN 1 WEEKS, SUBCUTANEOUS
     Route: 058
     Dates: start: 20080101, end: 20081201
  3. REBIF [Suspect]
     Indication: MULTIPLE SCLEROSIS
     Dosage: 8.8 MCG, 3 IN 1 WEEKS, SUBCUTANEOUS; 44 MCG, 3 IN 1 WEEKS, SUBCUTANEOUS
     Route: 058
     Dates: start: 20090101
  4. METFORMIN HCL [Concomitant]
  5. GLIPIZIDE [Concomitant]
  6. LYRICA [Concomitant]
  7. ATACAND [Concomitant]
  8. NEXIUM [Concomitant]
  9. ZYPREXA [Concomitant]
  10. LAMICTAL [Concomitant]
  11. VISTARIL CAP [Concomitant]
  12. LORTAB (VICODIN) [Concomitant]
  13. ZANAFLEX [Concomitant]
  14. ALLEGA-D (ALLEGRA-D /01367401) [Concomitant]

REACTIONS (2)
  - LOSS OF CONSCIOUSNESS [None]
  - RENAL FAILURE [None]
